FAERS Safety Report 7429768-7 (Version None)
Quarter: 2011Q2

REPORT INFORMATION
  Report Type: 
  Country: None (occurrence: None)
  Receive Date: 20110414
  Receipt Date: 20110404
  Transmission Date: 20111010
  Serious: Yes (Hospitalization)
  Sender: FDA-Public Use
  Company Number: UTC-006114

PATIENT
  Age: 44 Year
  Sex: Female

DRUGS (1)
  1. REMODULIN [Suspect]
     Dosage: 86.4 UG/KG (0.06 UG/KG,1 IN 1 MIN),INTRAVENOUS
     Route: 042
     Dates: start: 20100401

REACTIONS (2)
  - INFECTION [None]
  - PNEUMONIA [None]
